APPROVED DRUG PRODUCT: CALCIBIND
Active Ingredient: CELLULOSE SODIUM PHOSPHATE
Strength: 2.5GM/PACKET
Dosage Form/Route: POWDER;ORAL
Application: N018757 | Product #002
Applicant: MISSION PHARMACAL CO
Approved: Dec 28, 1982 | RLD: No | RS: No | Type: DISCN